FAERS Safety Report 4444805-X (Version None)
Quarter: 2004Q3

REPORT INFORMATION
  Report Type: 
  Country: None (occurrence: None)
  Receive Date: 20040907
  Receipt Date: 20040907
  Transmission Date: 20050211
  Serious: Yes (Hospitalization)
  Sender: FDA-Public Use
  Company Number: None

PATIENT
  Age: 76 Year
  Sex: Female
  Weight: 59.8748 kg

DRUGS (10)
  1. IRESSA [Suspect]
     Indication: PANCREATIC CARCINOMA
     Dosage: 250 MG PO QD
     Route: 048
     Dates: start: 20040823, end: 20040825
  2. TRILEPTAL [Concomitant]
  3. LEXAPRO [Concomitant]
  4. ALDACTONE [Concomitant]
  5. TOPROL-XL [Concomitant]
  6. ALTACE [Concomitant]
  7. FLORINEF [Concomitant]
  8. TENORMIN [Concomitant]
  9. PREMARIN [Concomitant]
  10. POTASSIUM [Concomitant]

REACTIONS (4)
  - DEHYDRATION [None]
  - OBSTRUCTION [None]
  - POST PROCEDURAL VOMITING [None]
  - SEPSIS [None]
